FAERS Safety Report 12764720 (Version 1)
Quarter: 2016Q3

REPORT INFORMATION
  Report Type: Spontaneous
  Country: IE (occurrence: IE)
  Receive Date: 20160921
  Receipt Date: 20160921
  Transmission Date: 20161109
  Serious: Yes (Hospitalization)
  Sender: FDA-Public Use
  Company Number: IE-ASTRAZENECA-2016SE98289

PATIENT
  Sex: Male

DRUGS (1)
  1. MEROPENEM. [Suspect]
     Active Substance: MEROPENEM
     Dosage: 2000 MG IN 100ML SODIUM CHLORIDE 0.9%
     Route: 042

REACTIONS (1)
  - Nodule [Unknown]
